FAERS Safety Report 7627130-5 (Version None)
Quarter: 2011Q3

REPORT INFORMATION
  Report Type: 
  Country: None (occurrence: None)
  Receive Date: 20110721
  Receipt Date: 20110713
  Transmission Date: 20111222
  Serious: Yes (Other)
  Sender: FDA-Public Use
  Company Number: US-ASTRAZENECA-2007UW10574

PATIENT
  Age: 56 Year
  Sex: Female
  Weight: 72.6 kg

DRUGS (2)
  1. SEROQUEL [Suspect]
     Route: 048
  2. SEROQUEL [Suspect]
     Indication: BIPOLAR DISORDER
     Route: 048

REACTIONS (10)
  - WEIGHT INCREASED [None]
  - SLEEP APNOEA SYNDROME [None]
  - GALLBLADDER DISORDER [None]
  - PANCREATIC DISORDER [None]
  - COMA [None]
  - LOSS OF CONSCIOUSNESS [None]
  - GASTROINTESTINAL DISORDER [None]
  - HYPERGLYCAEMIA [None]
  - DYSPHAGIA [None]
  - LETHARGY [None]
